FAERS Safety Report 10154419 (Version 1)
Quarter: 2014Q2

REPORT INFORMATION
  Report Type: Spontaneous
  Country: US (occurrence: US)
  Receive Date: 20140506
  Receipt Date: 20140506
  Transmission Date: 20141212
  Serious: No
  Sender: FDA-Public Use
  Company Number: US-PFIZER INC-2014121284

PATIENT
  Age: 56 Year
  Sex: Female

DRUGS (14)
  1. PROTONIX [Suspect]
     Dosage: 40 MG, DAILY
  2. MORPHINE SULFATE [Suspect]
     Dosage: UNK
  3. XANAX [Suspect]
     Dosage: UNK
  4. METFORMIN HCL [Suspect]
     Dosage: UNK
  5. LISINOPRIL [Suspect]
     Dosage: UNK
  6. HYDROCHLOROTHIAZIDE [Suspect]
     Dosage: UNK
  7. MOTRIN [Suspect]
     Dosage: UNK
  8. E.E.S. [Suspect]
     Dosage: UNK
  9. CODEINE [Suspect]
     Dosage: UNK
  10. HYDROCODONE [Suspect]
     Dosage: UNK
  11. CRESTOR [Suspect]
     Dosage: UNK
  12. FIORICET [Suspect]
     Dosage: UNK
  13. COMBIGAN [Suspect]
     Dosage: UNK
  14. FLEXERIL [Suspect]
     Dosage: UNK

REACTIONS (1)
  - Drug hypersensitivity [Unknown]
